FAERS Safety Report 4657379-5 (Version None)
Quarter: 2005Q2

REPORT INFORMATION
  Report Type: 
  Country: None (occurrence: None)
  Receive Date: 20050405
  Receipt Date: 20040722
  Transmission Date: 20051028
  Serious: Yes (Other)
  Sender: FDA-Public Use
  Company Number: 2004043469

PATIENT
  Age: 31 Year
  Sex: Male
  Weight: 86.1834 kg

DRUGS (6)
  1. GEODON [Suspect]
     Indication: POST-TRAUMATIC STRESS DISORDER
     Dosage: 160 MG (80 MG, 2 IN 1 D), ORAL
     Route: 048
     Dates: start: 20040611, end: 20040614
  2. ARIPIPRAZOLE (ARIPIPRAZOLE) [Suspect]
     Indication: THINKING ABNORMAL
     Dosage: 10 MG (10 MG, 1 IN 1 D), ORAL
     Route: 048
     Dates: start: 20040618
  3. ESCITALOPRAM OXALATE [Concomitant]
  4. ATOMOXETINE HYDROCHLORIDE (ATOMOXETINE HYDROCHLORIDE) [Concomitant]
  5. CLONAZEPAM [Concomitant]
  6. PANTOPRAZOLE SODIUM [Concomitant]

REACTIONS (9)
  - BRUXISM [None]
  - DYSARTHRIA [None]
  - DYSPNOEA [None]
  - FACIAL PALSY [None]
  - HYPERSENSITIVITY [None]
  - SPEECH DISORDER [None]
  - SWOLLEN TONGUE [None]
  - TARDIVE DYSKINESIA [None]
  - TRISMUS [None]
